FAERS Safety Report 14412705 (Version 2)
Quarter: 2018Q1

REPORT INFORMATION
  Report Type: Spontaneous
  Country: US (occurrence: US)
  Receive Date: 20180119
  Receipt Date: 20180206
  Transmission Date: 20180509
  Serious: Yes (Other)
  Sender: FDA-Public Use
  Company Number: US-INCYTE CORPORATION-2018IN000250

PATIENT

DRUGS (6)
  1. JAKAFI [Suspect]
     Active Substance: RUXOLITINIB
     Dosage: 10 MG, BID
     Route: 048
     Dates: start: 20180111
  2. CELEXA [Concomitant]
     Active Substance: CITALOPRAM HYDROBROMIDE
     Indication: PRODUCT USED FOR UNKNOWN INDICATION
  3. GABAPENTIN. [Concomitant]
     Active Substance: GABAPENTIN
     Indication: PRODUCT USED FOR UNKNOWN INDICATION
  4. WELLBUTRIN [Concomitant]
     Active Substance: BUPROPION HYDROCHLORIDE
     Indication: PRODUCT USED FOR UNKNOWN INDICATION
  5. JAKAFI [Suspect]
     Active Substance: RUXOLITINIB
     Indication: MYELOFIBROSIS
     Dosage: 10 MG, QD
     Dates: end: 20180110
  6. JAKAFI [Suspect]
     Active Substance: RUXOLITINIB
     Dosage: 10 MG, QD
     Route: 048

REACTIONS (3)
  - Urinary retention [Unknown]
  - Abdominal distension [Unknown]
  - Micturition urgency [Unknown]
